FAERS Safety Report 6787711 (Version 2)
Quarter: 2017Q1

REPORT INFORMATION
  Report Type: Spontaneous
  Country: US (occurrence: US)
  Receive Date: 20081015
  Receipt Date: 20170315
  Transmission Date: 20170429
  Serious: No
  Sender: FDA-Public Use
  Company Number: US-ASTRAZENECA-2008UW13129

PATIENT
  Age: 10821 Day
  Sex: Female
  Weight: 81.7 kg

DRUGS (12)
  1. XYZAL [Concomitant]
     Active Substance: LEVOCETIRIZINE DIHYDROCHLORIDE
  2. ALBUTEROL INHALER [Concomitant]
     Active Substance: ALBUTEROL
  3. MULTIVITAMINS [Concomitant]
     Active Substance: VITAMINS
  4. SYMBICORT [Suspect]
     Active Substance: BUDESONIDE\FORMOTEROL FUMARATE DIHYDRATE
     Indication: ASTHMA
     Dosage: 2 PUFF TWO TIMES A DAY
     Route: 055
     Dates: start: 20080625, end: 20080627
  5. VERAMEX [Concomitant]
  6. ETODOLAC. [Concomitant]
     Active Substance: ETODOLAC
  7. ZOLMITRIPTAN. [Suspect]
     Active Substance: ZOLMITRIPTAN
     Dosage: GENERIC 5 MG, UNKNOWN
     Route: 065
  8. MINOCYCLINE [Concomitant]
     Active Substance: MINOCYCLINE\MINOCYCLINE HYDROCHLORIDE
  9. NORVASC [Concomitant]
     Active Substance: AMLODIPINE BESYLATE
  10. TOPAMAX [Concomitant]
     Active Substance: TOPIRAMATE
  11. LEVOTHYROXINE. [Concomitant]
     Active Substance: LEVOTHYROXINE
  12. PROTONIX [Concomitant]
     Active Substance: PANTOPRAZOLE SODIUM

REACTIONS (4)
  - Sensation of foreign body [Unknown]
  - Migraine [Unknown]
  - Throat tightness [Unknown]
  - Hypoaesthesia [Unknown]

NARRATIVE: CASE EVENT DATE: 20080625
